FAERS Safety Report 24949593 (Version 1)
Quarter: 2025Q1

REPORT INFORMATION
  Report Type: Spontaneous
  Country: US (occurrence: None)
  Receive Date: 20250209
  Receipt Date: 20250209
  Transmission Date: 20250409
  Serious: Yes (Life-Threatening, Hospitalization)
  Sender: FDA-CTU
  Company Number: None

PATIENT
  Age: 91 Year
  Sex: Female
  Weight: 54 kg

DRUGS (8)
  1. AMIODARONE [Suspect]
     Active Substance: AMIODARONE
     Indication: Atrial fibrillation
     Dosage: OTHER QUANTITY : 1 TABLET(S);?FREQUENCY : DAILY;?
     Route: 048
  2. ELIQUIS [Concomitant]
     Active Substance: APIXABAN
  3. LASIX [Concomitant]
     Active Substance: FUROSEMIDE
  4. syndthroid [Concomitant]
  5. cytomegalovirus [Concomitant]
  6. VIBEGRON [Concomitant]
     Active Substance: VIBEGRON
  7. SODIUM BICARBONATE [Concomitant]
     Active Substance: SODIUM BICARBONATE
  8. VITAMINS [Concomitant]
     Active Substance: VITAMINS

REACTIONS (9)
  - Toxicity to various agents [None]
  - Disorientation [None]
  - Gait inability [None]
  - Renal disorder [None]
  - Eye disorder [None]
  - Hypothyroidism [None]
  - Vertigo [None]
  - Pneumonia [None]
  - Prescribed overdose [None]

NARRATIVE: CASE EVENT DATE: 20240605
